FAERS Safety Report 6406871-1 (Version None)
Quarter: 2009Q4

REPORT INFORMATION
  Report Type: 
  Country: None (occurrence: None)
  Receive Date: 20091020
  Receipt Date: 20091013
  Transmission Date: 20100525
  Serious: Yes (Life-Threatening)
  Sender: FDA-Public Use
  Company Number: AT-ROCHE-662090

PATIENT
  Age: 50 Year
  Sex: Female

DRUGS (3)
  1. XELODA [Suspect]
     Indication: METASTATIC GASTRIC CANCER
     Route: 048
     Dates: start: 20090930, end: 20091009
  2. EPIRUBICIN [Concomitant]
     Indication: METASTATIC GASTRIC CANCER
     Route: 042
     Dates: start: 20090930, end: 20090930
  3. OXALIPLATIN [Concomitant]
     Indication: METASTATIC GASTRIC CANCER
     Route: 042
     Dates: start: 20090930, end: 20090930

REACTIONS (1)
  - RENAL FAILURE ACUTE [None]
